FAERS Safety Report 4553204-1 (Version None)
Quarter: 2005Q1

REPORT INFORMATION
  Report Type: 
  Country: None (occurrence: None)
  Receive Date: 20050113
  Receipt Date: 20041231
  Transmission Date: 20050727
  Serious: Yes (Other)
  Sender: FDA-Public Use
  Company Number: 2005001680

PATIENT
  Age: 46 Year
  Sex: Female
  Weight: 45.3597 kg

DRUGS (6)
  1. GEODON [Suspect]
     Indication: ILL-DEFINED DISORDER
     Dosage: 80 MG (40 MG, 2 IN 1 D), ORAL
     Route: 048
     Dates: start: 20040901
  2. ALPRAZOLAM [Concomitant]
  3. ZOLPIDEM TARTRATE [Concomitant]
  4. CALCIUM WITH VITAMIN D (CALCIUM PHOSPHATE, CALCIUM SODIUM LACTATE, ERG [Concomitant]
  5. LIOTHYRONINE SODIUM [Concomitant]
  6. TRAZODONE (TRAZODONE) [Concomitant]

REACTIONS (5)
  - ANXIETY [None]
  - CONFUSIONAL STATE [None]
  - SLEEP DISORDER [None]
  - THYROID GLAND CANCER [None]
  - WEIGHT INCREASED [None]
